FAERS Safety Report 15982117 (Version 2)
Quarter: 2019Q1

REPORT INFORMATION
  Report Type: Spontaneous
  Country: US (occurrence: US)
  Receive Date: 20190219
  Receipt Date: 20190304
  Transmission Date: 20190418
  Serious: Yes (Life-Threatening, Hospitalization, Disabling, Other)
  Sender: FDA-Public Use
  Company Number: US-PFIZER INC-2019072888

PATIENT
  Age: 67 Year
  Sex: Female
  Weight: 76 kg

DRUGS (1)
  1. ATORVASTATIN CALCIUM. [Suspect]
     Active Substance: ATORVASTATIN CALCIUM
     Indication: BLOOD CHOLESTEROL ABNORMAL
     Dosage: 40 MG, 1X/DAY (AT BEDTIME)
     Route: 048
     Dates: end: 20181210

REACTIONS (7)
  - Muscle tightness [Recovered/Resolved]
  - Muscle spasms [Recovering/Resolving]
  - Drug ineffective [Unknown]
  - Pain in extremity [Recovering/Resolving]
  - Cardiac flutter [Unknown]
  - Nerve injury [Unknown]
  - Pain in extremity [Recovered/Resolved]

NARRATIVE: CASE EVENT DATE: 201811
